FAERS Safety Report 4661407-0 (Version None)
Quarter: 2005Q2

REPORT INFORMATION
  Report Type: 
  Country: None (occurrence: None)
  Receive Date: 20050513
  Receipt Date: 20050318
  Transmission Date: 20051028
  Serious: Yes (Life-Threatening, Hospitalization, Other)
  Sender: FDA-Public Use
  Company Number: US-GLAXOSMITHKLINE-A0550441A

PATIENT
  Age: 67 Year
  Sex: Male

DRUGS (11)
  1. LAMICTAL [Suspect]
     Indication: EPILEPSY
     Route: 048
     Dates: start: 20041215, end: 20050211
  2. DILANTIN [Concomitant]
     Dosage: 500MG PER DAY
     Route: 065
  3. FLOMAX [Concomitant]
     Dosage: .4MG PER DAY
     Route: 065
  4. INSULIN [Concomitant]
     Route: 065
  5. ZANTAC [Concomitant]
     Dosage: 150MG TWICE PER DAY
     Route: 048
  6. LEXAPRO [Concomitant]
     Dosage: 20MG PER DAY
     Route: 065
  7. LISINOPRIL [Concomitant]
     Dosage: 20MG PER DAY
  8. TOPROL-XL [Concomitant]
     Dosage: 100MG TWICE PER DAY
  9. MULTI-VITAMIN [Concomitant]
     Dosage: 1UNIT PER DAY
  10. PLETAL [Concomitant]
     Dosage: 100MG AS REQUIRED
  11. VITAMIN B-12 [Concomitant]
     Dosage: 50MCG PER DAY

REACTIONS (8)
  - ADVERSE EVENT [None]
  - AMNESIA [None]
  - ANTICONVULSANT DRUG LEVEL DECREASED [None]
  - CONVULSION [None]
  - DISORIENTATION [None]
  - LOSS OF CONSCIOUSNESS [None]
  - SOMNOLENCE [None]
  - STATUS EPILEPTICUS [None]
